FAERS Safety Report 8970102 (Version 4)
Quarter: 2013Q1

REPORT INFORMATION
  Report Type: Spontaneous
  Country: JP (occurrence: JP)
  Receive Date: 20121218
  Receipt Date: 20130219
  Transmission Date: 20140127
  Serious: Yes (Hospitalization)
  Sender: FDA-Public Use
  Company Number: JP-BAYER-2012-132006

PATIENT
  Age: 84 Year
  Sex: Male
  Weight: 47.17 kg

DRUGS (9)
  1. BAYASPIRIN [Suspect]
     Indication: THROMBOSIS PROPHYLAXIS
     Dosage: 100 MG, QD
     Route: 048
     Dates: start: 200501, end: 20120305
  2. WARFARIN [Concomitant]
     Indication: ANTICOAGULANT THERAPY
     Dosage: 2.25 MG, QD
     Route: 048
     Dates: start: 200501
  3. LANIRAPID [Concomitant]
     Indication: ARRHYTHMIA PROPHYLAXIS
     Dosage: .05 MG, QD
     Route: 048
     Dates: start: 200501
  4. FAMOTIDINE [Concomitant]
     Indication: HYPERCHLORHYDRIA
     Dosage: 20 MG, QD
     Route: 048
     Dates: start: 200501
  5. LASIX [Concomitant]
     Indication: POLYURIA
     Dosage: 40 MG, QD
     Route: 048
     Dates: start: 200501
  6. DIOVAN [Concomitant]
     Indication: HYPERTENSION
     Dosage: 40 MG, QD
     Route: 048
     Dates: start: 200501
  7. RENIVACE [Concomitant]
     Indication: HYPERTENSION
     Dosage: 2.5 MG, QD
     Route: 048
     Dates: start: 200501
  8. CADUET [Concomitant]
     Indication: HYPERTENSION
     Dosage: 1 DF, QD
     Route: 048
  9. TALION [Concomitant]
     Indication: ANTIALLERGIC THERAPY
     Dosage: 20 MG, QD
     Route: 048

REACTIONS (1)
  - Small intestine ulcer [Recovered/Resolved]
